FAERS Safety Report 9365174 (Version 1)
Quarter: 2013Q2

REPORT INFORMATION
  Report Type: Spontaneous
  Country: TR (occurrence: TR)
  Receive Date: 20130624
  Receipt Date: 20130624
  Transmission Date: 20140414
  Serious: Yes (Other)
  Sender: FDA-Public Use
  Company Number: PHHY2013TR063416

PATIENT
  Age: 29 Year
  Sex: Male

DRUGS (2)
  1. INDOMETHACIN [Suspect]
     Indication: ANKYLOSING SPONDYLITIS
  2. SULFASALAZINE [Suspect]
     Indication: ANKYLOSING SPONDYLITIS

REACTIONS (3)
  - Drug reaction with eosinophilia and systemic symptoms [Unknown]
  - Pyrexia [Unknown]
  - Rash [Unknown]
